FAERS Safety Report 25867334 (Version 2)
Quarter: 2025Q4

REPORT INFORMATION
  Report Type: Spontaneous
  Country: US (occurrence: US)
  Receive Date: 20251001
  Receipt Date: 20251104
  Transmission Date: 20260117
  Serious: Yes (Other)
  Sender: Kenvue
  Company Number: US-KENVUE-20250913139

PATIENT
  Age: 40 Year
  Sex: Female

DRUGS (4)
  1. SUDAFED PE HEAD CONGESTION PLUS FLU SEVERE [Suspect]
     Active Substance: ACETAMINOPHEN\DEXTROMETHORPHAN HYDROBROMIDE\GUAIFENESIN\PHENYLEPHRINE HYDROCHLORIDE
     Indication: Paranasal sinus discomfort
     Dosage: 2 DOSAGE FORM, SINGLE (ONCE)
     Route: 065
     Dates: start: 20250919, end: 20250919
  2. SUDAFED PE HEAD CONGESTION PLUS FLU SEVERE [Suspect]
     Active Substance: ACETAMINOPHEN\DEXTROMETHORPHAN HYDROBROMIDE\GUAIFENESIN\PHENYLEPHRINE HYDROCHLORIDE
     Indication: Oropharyngeal pain
  3. VYVANSE [Concomitant]
     Active Substance: LISDEXAMFETAMINE DIMESYLATE
     Indication: Attention deficit hyperactivity disorder
     Route: 065
  4. WELLBUTRIN [Concomitant]
     Active Substance: BUPROPION HYDROCHLORIDE
     Indication: Attention deficit hyperactivity disorder
     Route: 065

REACTIONS (3)
  - Loss of consciousness [Recovered/Resolved]
  - Hyperhidrosis [Recovering/Resolving]
  - Dizziness [Recovering/Resolving]

NARRATIVE: CASE EVENT DATE: 20250919
